FAERS Safety Report 16145394 (Version 1)
Quarter: 2019Q2

REPORT INFORMATION
  Report Type: Spontaneous
  Country: US (occurrence: US)
  Receive Date: 20190402
  Receipt Date: 20190402
  Transmission Date: 20190711
  Serious: No
  Sender: FDA-Public Use
  Company Number: US-AUROBINDO-AUR-APU-2018-039326

PATIENT
  Sex: Female
  Weight: 54.42 kg

DRUGS (1)
  1. SERTRALINE HCL [Suspect]
     Active Substance: SERTRALINE HYDROCHLORIDE
     Indication: ANXIETY
     Dosage: UNK, ONE AND HALF TABLET PER DAY .
     Route: 065
     Dates: end: 20180725

REACTIONS (6)
  - Lethargy [Not Recovered/Not Resolved]
  - Anxiety [Not Recovered/Not Resolved]
  - Drug ineffective [Unknown]
  - Myalgia [Not Recovered/Not Resolved]
  - Nausea [Not Recovered/Not Resolved]
  - Headache [Not Recovered/Not Resolved]
